FAERS Safety Report 17871342 (Version 2)
Quarter: 2020Q2

REPORT INFORMATION
  Report Type: Spontaneous
  Country: CA (occurrence: CA)
  Receive Date: 20200608
  Receipt Date: 20200615
  Transmission Date: 20200714
  Serious: Yes (Death)
  Sender: FDA-Public Use
  Company Number: CA-PFIZER INC-2020151014

PATIENT
  Age: 62 Year
  Sex: Male
  Weight: 98.7 kg

DRUGS (2)
  1. KEYTRUDA [Concomitant]
     Active Substance: PEMBROLIZUMAB
     Indication: METASTATIC RENAL CELL CARCINOMA
     Dosage: 200 MG, CYCLIC (DAY 1 Q 21 DAY X 35 CYCLES)
     Route: 042
     Dates: start: 20200501
  2. INLYTA [Suspect]
     Active Substance: AXITINIB
     Indication: METASTATIC RENAL CELL CARCINOMA
     Dosage: 5 MG, CYCLIC (2X/DAY FOR 21 DAYS CONTINOUSLY)
     Route: 048
     Dates: start: 20200501

REACTIONS (3)
  - Internal haemorrhage [Fatal]
  - Off label use [Unknown]
  - Product use in unapproved indication [Unknown]

NARRATIVE: CASE EVENT DATE: 202005
